FAERS Safety Report 4377368-8 (Version None)
Quarter: 2004Q2

REPORT INFORMATION
  Report Type: 
  Country: None (occurrence: None)
  Receive Date: 20040609
  Receipt Date: 20040402
  Transmission Date: 20050107
  Serious: No
  Sender: FDA-Public Use
  Company Number: 2004207820US

PATIENT
  Age: 75 Year
  Sex: Female

DRUGS (3)
  1. BEXTRA [Suspect]
     Indication: FRACTURE
     Dosage: 10 MG QD
     Route: 065
     Dates: start: 20040401
  2. SYNTHROID [Concomitant]
  3. LIPITOR [Concomitant]

REACTIONS (1)
  - SEDATION [None]
